FAERS Safety Report 13672547 (Version 1)
Quarter: 2017Q2

REPORT INFORMATION
  Report Type: Spontaneous
  Country: US (occurrence: US)
  Receive Date: 20170621
  Receipt Date: 20170621
  Transmission Date: 20170830
  Serious: Yes (Hospitalization, Other)
  Sender: FDA-Public Use
  Company Number: US-PFIZER INC-2017263599

PATIENT
  Age: 57 Year
  Sex: Female

DRUGS (1)
  1. REVATIO [Suspect]
     Active Substance: SILDENAFIL CITRATE
     Indication: PULMONARY HYPERTENSION
     Dosage: UNK

REACTIONS (6)
  - Anaemia [Unknown]
  - Sepsis [Unknown]
  - Pulmonary hypertension [Unknown]
  - Depression [Unknown]
  - Condition aggravated [Unknown]
  - Malaise [Unknown]
